FAERS Safety Report 16094683 (Version 1)
Quarter: 2019Q1

REPORT INFORMATION
  Report Type: Spontaneous
  Country: US (occurrence: US)
  Receive Date: 20190216
  Receipt Date: 20190216
  Transmission Date: 20190418
  Serious: Yes (Hospitalization)
  Sender: FDA-Public Use
  Company Number: None

PATIENT
  Age: 62 Year
  Sex: Male

DRUGS (19)
  1. LISINOPRIL AND HYDROCHLOROTHIAZIDE [Concomitant]
     Active Substance: HYDROCHLOROTHIAZIDE\LISINOPRIL
  2. QUETIAPINE. [Concomitant]
     Active Substance: QUETIAPINE
  3. NAPROXON [Concomitant]
     Active Substance: NAPROXEN
  4. POTASSIUM [Concomitant]
     Active Substance: POTASSIUM
  5. VOLTAREN [Concomitant]
     Active Substance: DICLOFENAC SODIUM
  6. FOLIC ACID. [Concomitant]
     Active Substance: FOLIC ACID
  7. HUMIRA [Suspect]
     Active Substance: ADALIMUMAB
     Indication: RHEUMATOID ARTHRITIS
     Route: 058
     Dates: start: 20180613
  8. NIFEDIPINE. [Concomitant]
     Active Substance: NIFEDIPINE
  9. NISOLDIPINE. [Concomitant]
     Active Substance: NISOLDIPINE
  10. LIDOTHOL [Concomitant]
     Active Substance: LIDOCAINE\MENTHOL
  11. MORPHINE [Concomitant]
     Active Substance: MORPHINE
  12. ZOLPIDEM [Concomitant]
     Active Substance: ZOLPIDEM\ZOLPIDEM TARTRATE
  13. ELIQUIS [Concomitant]
     Active Substance: APIXABAN
  14. FUROSEMIDE. [Concomitant]
     Active Substance: FUROSEMIDE
  15. OMEPRAZOLE. [Concomitant]
     Active Substance: OMEPRAZOLE
  16. OXYCODONE [Concomitant]
     Active Substance: OXYCODONE
  17. QUETIAPINE. [Concomitant]
     Active Substance: QUETIAPINE
  18. GABAPENTIN. [Concomitant]
     Active Substance: GABAPENTIN
  19. IBUPROFEN. [Suspect]
     Active Substance: IBUPROFEN

REACTIONS (1)
  - Post procedural infection [None]

NARRATIVE: CASE EVENT DATE: 201811
